FAERS Safety Report 6830880-1 (Version None)
Quarter: 2010Q3

REPORT INFORMATION
  Report Type: 
  Country: None (occurrence: None)
  Receive Date: 20100712
  Receipt Date: 20100629
  Transmission Date: 20110219
  Serious: No
  Sender: FDA-Public Use
  Company Number: US-JNJFOC-20100700485

PATIENT
  Sex: Female
  Weight: 92.08 kg

DRUGS (10)
  1. DURAGESIC-100 [Suspect]
     Indication: NEURALGIA
     Dosage: NDC# 50458-0092-05
     Route: 062
  2. DURAGESIC-100 [Suspect]
     Dosage: NDC# 50458-092
     Route: 062
  3. DURAGESIC-100 [Suspect]
     Indication: NERVE INJURY
     Dosage: NDC# 50458-092
     Route: 062
  4. DURAGESIC-100 [Suspect]
     Dosage: NDC# 50458-0092-05
     Route: 062
  5. PAXIL [Concomitant]
     Indication: DEPRESSION
     Route: 048
  6. VALIUM [Concomitant]
     Indication: MUSCLE RELAXANT THERAPY
     Route: 048
  7. VICODIN [Concomitant]
     Indication: NEUROLOGICAL INFECTION
     Route: 048
  8. GLIPIZIDE [Concomitant]
     Indication: DIABETES MELLITUS
     Route: 048
  9. GLIPIZIDE [Concomitant]
     Route: 048
  10. NORVASC [Concomitant]
     Indication: HYPERTENSION
     Route: 048

REACTIONS (6)
  - NEURALGIA [None]
  - NEUROLOGICAL INFECTION [None]
  - PRODUCT ADHESION ISSUE [None]
  - PRODUCT QUALITY ISSUE [None]
  - TREATMENT NONCOMPLIANCE [None]
  - WRONG TECHNIQUE IN DRUG USAGE PROCESS [None]
